FAERS Safety Report 15702507 (Version 1)
Quarter: 2018Q4

REPORT INFORMATION
  Report Type: Spontaneous
  Country: PL (occurrence: PL)
  Receive Date: 20181210
  Receipt Date: 20181210
  Transmission Date: 20190205
  Serious: Yes (Hospitalization)
  Sender: FDA-Public Use
  Company Number: PL-ACCORD-095236

PATIENT
  Age: 59 Year
  Sex: Male

DRUGS (6)
  1. LERCANIDIPINE [Interacting]
     Active Substance: LERCANIDIPINE
     Indication: HYPERTENSION
     Dosage: 4 WEEKS BEFORE ADR - TILL HOSPIALISATION
     Route: 065
  2. ATORVASTATIN/ATORVASTATIN CALCIUM [Suspect]
     Active Substance: ATORVASTATIN CALCIUM
     Indication: CARDIAC DISORDER
     Dosage: 4 WEEKS BEFORE ADR - HOSPITALISATION
     Route: 065
  3. ACETYLSALICYLIC ACID [Concomitant]
     Active Substance: ASPIRIN
     Dosage: CONTINUOSLY
     Route: 065
  4. METOPROLOL. [Concomitant]
     Active Substance: METOPROLOL
     Dosage: CONTINUOSLY
     Route: 065
  5. AMLODIPINE [Concomitant]
     Active Substance: AMLODIPINE BESYLATE
     Dosage: DURING HOSPITALISATION
  6. ZOFENOPRIL/ZOFENOPRIL CALCIUM [Concomitant]
     Dosage: CONTINUOSLY
     Route: 065

REACTIONS (6)
  - Drug interaction [Unknown]
  - Abdominal pain [Recovering/Resolving]
  - Nausea [Recovering/Resolving]
  - Aspartate aminotransferase increased [Recovering/Resolving]
  - Dyspepsia [Recovering/Resolving]
  - Alanine aminotransferase increased [Recovering/Resolving]
